FAERS Safety Report 10432618 (Version 1)
Quarter: 2014Q3

REPORT INFORMATION
  Report Type: Spontaneous
  Country: FR (occurrence: None)
  Receive Date: 20140903
  Receipt Date: 20140903
  Transmission Date: 20150326
  Serious: Yes (Life-Threatening)
  Sender: FDA-Public Use
  Company Number: DEP_02263_2014

PATIENT
  Age: 92 Year
  Sex: Female

DRUGS (9)
  1. SERETIDE [Concomitant]
     Active Substance: FLUTICASONE FUROATE\SALMETEROL XINAFOATE
  2. TRIATEC [Concomitant]
     Active Substance: RAMIPRIL
  3. LASALIX [Concomitant]
  4. COUMADINE [Concomitant]
     Active Substance: WARFARIN SODIUM
  5. EBIXA [Concomitant]
     Active Substance: MEMANTINE HYDROCHLORIDE
  6. PECFENT [Suspect]
     Active Substance: FENTANYL CITRATE
     Indication: OFF LABEL USE
     Route: 045
     Dates: start: 20140604, end: 20140604
  7. INEXIUM [Concomitant]
     Active Substance: ESOMEPRAZOLE
  8. BISOPROLOL [Concomitant]
     Active Substance: BISOPROLOL
  9. PECFENT [Suspect]
     Active Substance: FENTANYL CITRATE
     Indication: PAIN PROPHYLAXIS
     Route: 045
     Dates: start: 20140604, end: 20140604

REACTIONS (4)
  - Miosis [None]
  - Cheyne-Stokes respiration [None]
  - Respiratory depression [None]
  - Somnolence [None]

NARRATIVE: CASE EVENT DATE: 20140604
